FAERS Safety Report 5127545-3 (Version None)
Quarter: 2006Q4

REPORT INFORMATION
  Report Type: 
  Country: None (occurrence: None)
  Receive Date: 20061011
  Receipt Date: 20060925
  Transmission Date: 20070319
  Serious: Yes (Disabling)
  Sender: FDA-Public Use
  Company Number: 14879

PATIENT
  Age: 79 Year
  Sex: Male
  Weight: 55 kg

DRUGS (6)
  1. FLUCONAZOLE [Suspect]
     Indication: CANDIDIASIS
     Dosage: 200 MG FREQ IV
     Route: 042
     Dates: start: 20060822, end: 20060826
  2. BENZYLPENICILLIN [Concomitant]
  3. HEPARIN [Concomitant]
  4. INSULIN [Concomitant]
  5. OMEPRAZOLE [Concomitant]
  6. PROPOFOL [Concomitant]

REACTIONS (3)
  - ALANINE AMINOTRANSFERASE INCREASED [None]
  - BLOOD ALKALINE PHOSPHATASE INCREASED [None]
  - LIVER FUNCTION TEST ABNORMAL [None]
